FAERS Safety Report 10075889 (Version 1)
Quarter: 2014Q2

REPORT INFORMATION
  Report Type: Spontaneous
  Country: US (occurrence: US)
  Receive Date: 20140414
  Receipt Date: 20140414
  Transmission Date: 20141212
  Serious: No
  Sender: FDA-Public Use
  Company Number: US-B.I. PHARMACEUTICALS,INC./RIDGEFIELD-2014-BI-14547BP

PATIENT
  Age: 79 Year
  Sex: Female
  Weight: 60.9 kg

DRUGS (9)
  1. PRADAXA [Suspect]
     Indication: ATRIAL FIBRILLATION
     Dosage: 150 MG
     Route: 048
     Dates: start: 20140326
  2. PRADAXA [Suspect]
     Dosage: 300 MG
     Route: 048
     Dates: end: 20140318
  3. SYNTHROID [Concomitant]
     Dosage: 50 MCG
     Route: 048
  4. PROTONIX [Concomitant]
     Indication: GASTROOESOPHAGEAL REFLUX DISEASE
     Dosage: 40 MG
     Route: 048
  5. PREDNISONE [Concomitant]
     Indication: MYALGIA
     Dosage: 10 MG
     Route: 048
  6. LANOXIN [Concomitant]
     Indication: ATRIAL FIBRILLATION
     Dosage: 0.25 MG
     Route: 048
  7. CRESTOR [Concomitant]
     Indication: BLOOD CHOLESTEROL INCREASED
     Dosage: 5 MG
     Route: 048
  8. PULMICORT [Concomitant]
     Indication: ASTHMA
     Dosage: 5 ML
     Route: 055
  9. XOEPENEX [Concomitant]
     Indication: ASTHMA
     Dosage: 5 ML
     Route: 055

REACTIONS (1)
  - Haemoptysis [Recovered/Resolved]
